FAERS Safety Report 9360749 (Version 2)
Quarter: 2013Q3

REPORT INFORMATION
  Report Type: Spontaneous
  Country: DE (occurrence: DE)
  Receive Date: 20130621
  Receipt Date: 20130710
  Transmission Date: 20140515
  Serious: Yes (Death)
  Sender: FDA-Public Use
  Company Number: DE-SANOFI-AVENTIS-2013SA061162

PATIENT
  Age: 82 Year
  Sex: Male

DRUGS (1)
  1. CLEXANE [Suspect]
     Indication: ATRIAL FIBRILLATION
     Route: 058
     Dates: start: 20130404, end: 20130606

REACTIONS (2)
  - Cerebral artery embolism [Fatal]
  - Off label use [Fatal]
